FAERS Safety Report 12806437 (Version 1)
Quarter: 2016Q4

REPORT INFORMATION
  Report Type: Spontaneous
  Country: IT (occurrence: IT)
  Receive Date: 20161004
  Receipt Date: 20161004
  Transmission Date: 20170207
  Serious: Yes (Hospitalization)
  Sender: FDA-Public Use
  Company Number: IT-BRISTOL-MYERS SQUIBB COMPANY-BMS-2016-077472

PATIENT
  Age: 80 Year
  Sex: Male

DRUGS (1)
  1. COUMADIN [Suspect]
     Active Substance: WARFARIN SODIUM
     Indication: DRUG ABUSE
     Dosage: 5 U, UNK
     Route: 048
     Dates: start: 20160609

REACTIONS (4)
  - International normalised ratio increased [Recovered/Resolved]
  - Disorganised speech [Recovered/Resolved]
  - Product use issue [Unknown]
  - Drug abuse [Recovered/Resolved]

NARRATIVE: CASE EVENT DATE: 20160609
